FAERS Safety Report 13189802 (Version 1)
Quarter: 2017Q1

REPORT INFORMATION
  Report Type: Report from Study
  Country: CO (occurrence: CO)
  Receive Date: 20170206
  Receipt Date: 20170206
  Transmission Date: 20170428
  Serious: Yes (Other)
  Sender: FDA-Public Use
  Company Number: CO-BRISTOL-MYERS SQUIBB COMPANY-BMS-2017-007915

PATIENT
  Sex: Male

DRUGS (1)
  1. DASATINIB [Suspect]
     Active Substance: DASATINIB
     Indication: CHRONIC MYELOID LEUKAEMIA
     Dosage: UNK, QD
     Route: 065

REACTIONS (1)
  - Blood lactate dehydrogenase increased [Recovering/Resolving]

NARRATIVE: CASE EVENT DATE: 20170126
